FAERS Safety Report 23158528 (Version 1)
Quarter: 2023Q4

REPORT INFORMATION
  Report Type: Spontaneous
  Country: MX (occurrence: None)
  Receive Date: 20231108
  Receipt Date: 20231108
  Transmission Date: 20240110
  Serious: Yes (Other)
  Sender: FDA-Public Use
  Company Number: MX-ROCHE-3452283

PATIENT
  Age: 52 Year
  Sex: Female
  Weight: 72 kg

DRUGS (5)
  1. HERCEPTIN [Suspect]
     Active Substance: TRASTUZUMAB
     Indication: Breast cancer
     Dosage: DOSE AND FREQUENCY WERE NOT REPORTED
     Route: 065
     Dates: start: 20210721
  2. CAPECITABINE [Suspect]
     Active Substance: CAPECITABINE
     Indication: Breast cancer
     Dosage: DOSE AND FREQUENCY WERE NOT REPORTED
     Route: 048
  3. DOCETAXEL [Concomitant]
     Active Substance: DOCETAXEL\DOCETAXEL ANHYDROUS
     Dosage: DOSE AND FREQUENCY WERE NOT REPORTED
  4. LAPATINIB [Concomitant]
     Active Substance: LAPATINIB
     Dosage: DOSE AND FREQUENCY WERE NOT REPORTED
  5. LETROZOLE [Concomitant]
     Active Substance: LETROZOLE
     Route: 048

REACTIONS (6)
  - Lung disorder [Unknown]
  - Lung neoplasm [Unknown]
  - Metastases to liver [Unknown]
  - Bone lesion [Unknown]
  - Nausea [Unknown]
  - Fatigue [Unknown]

NARRATIVE: CASE EVENT DATE: 20210827
